FAERS Safety Report 9631906 (Version 1)
Quarter: 2013Q4

REPORT INFORMATION
  Report Type: Spontaneous
  Country: UG (occurrence: None)
  Receive Date: 20131016
  Receipt Date: 20131016
  Transmission Date: 20140711
  Serious: Yes (Hospitalization, Other)
  Sender: FDA-Public Use
  Company Number: AUR-APL-2013-08580

PATIENT
  Age: 37 Year
  Sex: Female

DRUGS (3)
  1. ZIDOVUDINE [Suspect]
     Indication: ANTIRETROVIRAL THERAPY
     Dates: start: 201010
  2. LAMIVUDINE [Suspect]
     Indication: ANTIRETROVIRAL THERAPY
     Dates: start: 201010
  3. NEVIRAPINE [Suspect]
     Indication: ANTIRETROVIRAL THERAPY
     Dates: start: 201010

REACTIONS (2)
  - Immune reconstitution inflammatory syndrome associated tuberculosis [None]
  - Thyroid tuberculosis [None]
